FAERS Safety Report 14705238 (Version 1)
Quarter: 2018Q2

REPORT INFORMATION
  Report Type: Spontaneous
  Country: US (occurrence: US)
  Receive Date: 20180402
  Receipt Date: 20180402
  Transmission Date: 20180711
  Serious: Yes (Other)
  Sender: FDA-Public Use
  Company Number: US-PFIZER INC-2018132341

PATIENT
  Age: 66 Year
  Sex: Female
  Weight: 46 kg

DRUGS (5)
  1. DICLOFENAC SODIUM, MISOPROSTOL [Suspect]
     Active Substance: DICLOFENAC SODIUM\MISOPROSTOL
     Indication: RHEUMATOID ARTHRITIS
     Dosage: UNK
  2. ARTHROTEC [Suspect]
     Active Substance: DICLOFENAC SODIUM\MISOPROSTOL
     Indication: RHEUMATOID ARTHRITIS
     Dosage: [MISOPROSTOL 200 MCG]/[DICLOFENAC SODIUM 75 MG]
     Route: 048
  3. DETROL LA [Suspect]
     Active Substance: TOLTERODINE TARTRATE
     Indication: URINE ABNORMALITY
     Dosage: UNK UNK, 1X/DAY
  4. SYNTHROID [Concomitant]
     Active Substance: LEVOTHYROXINE SODIUM
  5. ARTHROTEC [Suspect]
     Active Substance: DICLOFENAC SODIUM\MISOPROSTOL
     Dosage: UNK

REACTIONS (11)
  - Limb injury [Unknown]
  - Peripheral swelling [Unknown]
  - Deafness [Unknown]
  - Swelling [Not Recovered/Not Resolved]
  - Drug ineffective [None]
  - Product substitution issue [None]
  - Intervertebral disc protrusion [Unknown]
  - Lung neoplasm malignant [Unknown]
  - Limb discomfort [Not Recovered/Not Resolved]
  - Rotator cuff syndrome [Unknown]
  - Pain [Unknown]
